FAERS Safety Report 9880977 (Version 1)
Quarter: 2014Q1

REPORT INFORMATION
  Report Type: Spontaneous
  Country: FR (occurrence: FR)
  Receive Date: 20140207
  Receipt Date: 20140207
  Transmission Date: 20141002
  Serious: Yes (Life-Threatening, Hospitalization)
  Sender: FDA-Public Use
  Company Number: FR-NOVOPROD-399431

PATIENT
  Age: 75 Year
  Sex: Male

DRUGS (2)
  1. NOVORAPID [Suspect]
     Indication: TYPE 2 DIABETES MELLITUS
     Dosage: UNK (6-8 IU IN THE MORNING AND 8-12 IU AT NOON)
     Route: 065
  2. LANTUS [Suspect]
     Indication: TYPE 2 DIABETES MELLITUS
     Dosage: 20 IU, QD (EVENING)
     Route: 065

REACTIONS (2)
  - Subdural haematoma [Recovered/Resolved]
  - Hypoglycaemia [Recovered/Resolved]
